FAERS Safety Report 6857924-5 (Version None)
Quarter: 2010Q3

REPORT INFORMATION
  Report Type: 
  Country: None (occurrence: None)
  Receive Date: 20100714
  Receipt Date: 20100630
  Transmission Date: 20110219
  Serious: Yes (Life-Threatening, Hospitalization, Other)
  Sender: FDA-Public Use
  Company Number: AUR-APL-2010-01444

PATIENT
  Age: 52 Year
  Sex: Male

DRUGS (5)
  1. SIMVASTATIN [Suspect]
     Indication: HYPERTENSION
     Dosage: 40 MG DAILY ORAL
     Route: 048
  2. FUSIDIC ACID [Suspect]
     Indication: LOCALISED INFECTION
     Dosage: 500 MG, TID UNK 28 DAYS-UNKNOWN
  3. AMLODIPINE [Concomitant]
  4. FLUCLOXACILLIN [Suspect]
  5. HUMALOG [Concomitant]

REACTIONS (9)
  - ALANINE AMINOTRANSFERASE INCREASED [None]
  - AREFLEXIA [None]
  - ASPARTATE AMINOTRANSFERASE INCREASED [None]
  - DIABETIC NEPHROPATHY [None]
  - HAEMODIALYSIS [None]
  - PARALYSIS FLACCID [None]
  - RENAL FAILURE [None]
  - RESPIRATORY FAILURE [None]
  - RHABDOMYOLYSIS [None]
